FAERS Safety Report 20387295 (Version 2)
Quarter: 2022Q1

REPORT INFORMATION
  Report Type: Other
  Country: US (occurrence: US)
  Receive Date: 20220127
  Receipt Date: 20220318
  Transmission Date: 20220423
  Serious: Yes (Hospitalization)
  Sender: FDA-Public Use
  Company Number: US-Covis Pharma GmbH-2022COV00174

PATIENT
  Age: 21 Year
  Sex: Female

DRUGS (2)
  1. MAKENA [Suspect]
     Active Substance: HYDROXYPROGESTERONE CAPROATE
     Indication: Premature delivery
     Route: 058
     Dates: start: 20211209, end: 202201
  2. VITAMINS [Concomitant]
     Active Substance: VITAMINS
     Indication: Product used for unknown indication
     Dates: start: 20210930

REACTIONS (3)
  - Shortened cervix [Not Recovered/Not Resolved]
  - Cervical incompetence [Unknown]
  - Product administration error [Unknown]

NARRATIVE: CASE EVENT DATE: 20220111
